FAERS Safety Report 9264920 (Version 6)
Quarter: 2014Q1

REPORT INFORMATION
  Report Type: Spontaneous
  Country: US (occurrence: US)
  Receive Date: 20130501
  Receipt Date: 20140114
  Transmission Date: 20141002
  Serious: Yes (Hospitalization, Other)
  Sender: FDA-Public Use
  Company Number: US-009507513-1304USA017091

PATIENT
  Sex: Female
  Weight: 72.56 kg

DRUGS (7)
  1. FOSAMAX [Suspect]
     Indication: OSTEOPENIA
     Dosage: 70 MG, QW
     Route: 048
     Dates: start: 200508
  2. ALENDRONATE SODIUM [Suspect]
     Indication: OSTEOPENIA
     Dosage: 70 MG, QW
     Route: 048
     Dates: start: 200802, end: 201104
  3. VITAMINS (UNSPECIFIED) [Concomitant]
     Dosage: ONE DAILY
     Dates: start: 1998
  4. CALCIUM (UNSPECIFIED) [Concomitant]
     Dosage: 756 MG, QD
     Dates: start: 2000
  5. FLONASE [Concomitant]
     Indication: HYPERSENSITIVITY
     Dosage: UNK
     Dates: start: 2005
  6. TRIAMTERENE [Concomitant]
     Indication: SWELLING
     Dosage: UNK
     Dates: start: 199807
  7. TRIAMTERENE [Concomitant]
     Indication: OEDEMA

REACTIONS (28)
  - Femur fracture [Recovering/Resolving]
  - Intramedullary rod insertion [Unknown]
  - Meningitis pneumococcal [Unknown]
  - Removal of internal fixation [Unknown]
  - Packed red blood cell transfusion [Unknown]
  - Colitis [Unknown]
  - Hypokalaemia [Unknown]
  - Renal failure acute [Unknown]
  - Device dislocation [Unknown]
  - Foot fracture [Unknown]
  - Osteoarthritis [Unknown]
  - Hypercholesterolaemia [Unknown]
  - Vitamin D deficiency [Unknown]
  - Adverse event [Unknown]
  - Osteoporosis [Unknown]
  - Arthritis [Unknown]
  - Blister [Recovered/Resolved]
  - Balance disorder [Unknown]
  - Rheumatoid arthritis [Unknown]
  - Osteoarthritis [Unknown]
  - Incision site erythema [Unknown]
  - Pyrexia [Unknown]
  - White blood cell count increased [Unknown]
  - Joint injury [Unknown]
  - Blood magnesium decreased [Unknown]
  - Rash [Recovering/Resolving]
  - Arthralgia [Unknown]
  - Drug ineffective [Unknown]
